FAERS Safety Report 4626167-8 (Version None)
Quarter: 2005Q2

REPORT INFORMATION
  Report Type: 
  Country: None (occurrence: None)
  Receive Date: 20050331
  Receipt Date: 20040607
  Transmission Date: 20051028
  Serious: Yes (Other)
  Sender: FDA-Public Use
  Company Number: 200412823BCC

PATIENT
  Age: 55 Year
  Sex: Male
  Weight: 104.3273 kg

DRUGS (1)
  1. ALEVE (CAPLET) [Suspect]
     Indication: BACK INJURY
     Dosage: 440 MG, ONCE, ORAL
     Route: 048
     Dates: start: 20040607

REACTIONS (9)
  - BURNING SENSATION [None]
  - COUGH [None]
  - DYSPHAGIA [None]
  - DYSPNOEA [None]
  - ERYTHEMA [None]
  - HYPERSENSITIVITY [None]
  - PRURITUS [None]
  - RASH [None]
  - SWELLING FACE [None]
